FAERS Safety Report 18439001 (Version 1)
Quarter: 2020Q4

REPORT INFORMATION
  Report Type: Spontaneous
  Country: US (occurrence: US)
  Receive Date: 20201028
  Receipt Date: 20201028
  Transmission Date: 20210114
  Serious: No
  Sender: FDA-Public Use
  Company Number: US-PARATEK PHARMACEUTICALS, INC.-2020PTK00244

PATIENT
  Sex: Male

DRUGS (1)
  1. NUZYRA [Suspect]
     Active Substance: OMADACYCLINE
     Dosage: ^2 DAY ORAL LOADING DOSE PACK^
     Route: 048

REACTIONS (1)
  - Vomiting [Unknown]
